FAERS Safety Report 8167244-7 (Version None)
Quarter: 2012Q1

REPORT INFORMATION
  Report Type: 
  Country: None (occurrence: None)
  Receive Date: 20120227
  Receipt Date: 20120222
  Transmission Date: 20120608
  Serious: Yes (Life-Threatening)
  Sender: FDA-Public Use
  Company Number: FR-JNJFOC-20120210766

PATIENT
  Age: 51 Year
  Sex: Male

DRUGS (8)
  1. LOVENOX [Concomitant]
     Route: 065
  2. ROCEPHIN [Concomitant]
     Route: 065
     Dates: start: 20111215, end: 20120105
  3. VALIUM [Suspect]
     Indication: AGITATION
     Route: 065
     Dates: start: 20111219, end: 20120107
  4. PANTOPRAZOLE [Concomitant]
     Route: 065
  5. DORIBAX [Suspect]
     Indication: LUNG DISORDER
     Route: 041
     Dates: start: 20111226, end: 20120107
  6. LASIX [Concomitant]
     Route: 065
  7. ROVAMYCINE [Concomitant]
     Route: 065
     Dates: start: 20111220, end: 20111229
  8. BRICANYL [Concomitant]
     Route: 065

REACTIONS (2)
  - EPILEPSY [None]
  - SHOCK [None]
